FAERS Safety Report 6667317-1 (Version None)
Quarter: 2010Q2

REPORT INFORMATION
  Report Type: 
  Country: None (occurrence: None)
  Receive Date: 20100405
  Receipt Date: 20100330
  Transmission Date: 20101027
  Serious: Yes (Hospitalization, Other)
  Sender: FDA-Public Use
  Company Number: JP-B.I. PHARMACEUTICALS,INC./RIDGEFIELD-2010-BP-03481NB

PATIENT
  Sex: Male

DRUGS (7)
  1. MICARDIS [Suspect]
     Indication: HYPERTENSION
     Dosage: 40 MG
     Route: 048
     Dates: end: 20100326
  2. PANALDINE [Concomitant]
     Indication: CEREBRAL INFARCTION
     Dosage: 100 MG
     Route: 048
     Dates: end: 20100326
  3. ATELEC [Concomitant]
     Indication: HYPERTENSION
     Dosage: 10 MG
     Route: 048
  4. MUCODYNE [Concomitant]
     Dosage: 1500 MG
     Route: 048
  5. URIEF [Concomitant]
     Indication: CEREBRAL INFARCTION
     Dosage: 8 MG
     Route: 048
  6. DILTIAZEM HYDROCHLORIDE [Concomitant]
     Indication: HYPERTENSION
     Dosage: 100 MG
     Route: 048
  7. MAGMITT [Concomitant]
     Indication: CONSTIPATION
     Dosage: 990 MG
     Route: 048

REACTIONS (3)
  - FALL [None]
  - FEMORAL NECK FRACTURE [None]
  - HYPERKALAEMIA [None]
